FAERS Safety Report 4614728-1 (Version None)
Quarter: 2005Q2

REPORT INFORMATION
  Report Type: 
  Country: None (occurrence: None)
  Receive Date: 20050310
  Receipt Date: 20050105
  Transmission Date: 20051028
  Serious: Yes (Hospitalization)
  Sender: FDA-Public Use
  Company Number: A03200500023

PATIENT
  Age: 60 Year
  Sex: Female

DRUGS (3)
  1. ELOXATIN [Suspect]
     Indication: COLON CANCER STAGE III
     Dosage: INTRAVENOUS NOS
     Route: 042
     Dates: start: 20041201, end: 20041201
  2. FLUOROURACIL [Concomitant]
  3. LEUCOVORIN [Concomitant]

REACTIONS (4)
  - ASTHENIA [None]
  - DYSPHAGIA [None]
  - HYPOAESTHESIA [None]
  - NEUROPATHY PERIPHERAL [None]
